FAERS Safety Report 6184141-7 (Version None)
Quarter: 2009Q2

REPORT INFORMATION
  Report Type: 
  Country: None (occurrence: None)
  Receive Date: 20090508
  Receipt Date: 20090505
  Transmission Date: 20091009
  Serious: Yes (Hospitalization)
  Sender: FDA-Public Use
  Company Number: ES-JNJFOC-20080801937

PATIENT
  Sex: Male
  Weight: 85.8 kg

DRUGS (7)
  1. TMC125 [Suspect]
     Route: 048
  2. TMC125 [Suspect]
     Indication: HIV INFECTION
     Route: 048
  3. PREZISTA [Suspect]
     Indication: HIV INFECTION
     Route: 048
  4. RALTEGRAVIR [Suspect]
     Indication: HIV INFECTION
     Route: 048
  5. RITONAVIR [Suspect]
     Indication: HIV INFECTION
     Route: 048
  6. EMTRICITABINE [Suspect]
     Indication: HIV INFECTION
     Route: 048
  7. DAFLON [Concomitant]
     Indication: HAEMORRHOIDS

REACTIONS (2)
  - HEPATIC FAILURE [None]
  - HEPATITIS B [None]
